FAERS Safety Report 8031592-1 (Version None)
Quarter: 2012Q1

REPORT INFORMATION
  Report Type: 
  Country: None (occurrence: None)
  Receive Date: 20120109
  Receipt Date: 20120103
  Transmission Date: 20120608
  Serious: No
  Sender: FDA-Public Use
  Company Number: US-B.I. PHARMACEUTICALS,INC./RIDGEFIELD-2011-BP-17217BP

PATIENT

DRUGS (1)
  1. MIRAPEX [Suspect]

REACTIONS (1)
  - DRUG EFFECT DELAYED [None]
